FAERS Safety Report 4324625-7 (Version None)
Quarter: 2004Q1

REPORT INFORMATION
  Report Type: 
  Country: None (occurrence: None)
  Receive Date: 20040323
  Receipt Date: 20040312
  Transmission Date: 20041129
  Serious: Yes (Death, Life-Threatening, Hospitalization)
  Sender: FDA-Public Use
  Company Number: HQWYE778612MAR04

PATIENT
  Age: 73 Year
  Sex: Female

DRUGS (4)
  1. ETODOLAC [Suspect]
     Indication: BACK PAIN
     Dosage: 200 MG 2X PER 1 DAY, ORAL
     Route: 048
     Dates: start: 20030924, end: 20031007
  2. ENALAPRIL MALEATE [Suspect]
     Indication: HYPERTENSION
     Dosage: 5 MG DAILY, ORAL
     Route: 048
     Dates: start: 20021226, end: 20031024
  3. FUROSEMIDE [Concomitant]
  4. VOGLIBOSE (VOGLIBOSE) [Concomitant]

REACTIONS (13)
  - ANAEMIA [None]
  - ANOREXIA [None]
  - CONDITION AGGRAVATED [None]
  - DIALYSIS [None]
  - FATIGUE [None]
  - HAEMATURIA [None]
  - INFLAMMATION [None]
  - NAUSEA [None]
  - OEDEMA [None]
  - OEDEMA PERIPHERAL [None]
  - PNEUMONIA [None]
  - RENAL FAILURE ACUTE [None]
  - RENAL IMPAIRMENT [None]
